FAERS Safety Report 8269066-5 (Version None)
Quarter: 2012Q2

REPORT INFORMATION
  Report Type: 
  Country: None (occurrence: None)
  Receive Date: 20120409
  Receipt Date: 20120405
  Transmission Date: 20120825
  Serious: Yes (Other)
  Sender: FDA-Public Use
  Company Number: CA-PFIZER INC-2012087327

PATIENT
  Sex: Male

DRUGS (2)
  1. PERCOCET [Concomitant]
     Dosage: UNK
  2. VARENICLINE TARTRATE [Suspect]
     Dosage: 0.5 MG, 2X/DAY
     Dates: start: 20120327

REACTIONS (7)
  - GAIT DISTURBANCE [None]
  - HYPOAESTHESIA [None]
  - BACK PAIN [None]
  - ARTHRALGIA [None]
  - VOMITING [None]
  - PAIN IN EXTREMITY [None]
  - INSOMNIA [None]
